FAERS Safety Report 15533751 (Version 2)
Quarter: 2018Q4

REPORT INFORMATION
  Report Type: Spontaneous
  Country: US (occurrence: US)
  Receive Date: 20181021
  Receipt Date: 20181023
  Transmission Date: 20190205
  Serious: No
  Sender: FDA-Public Use
  Company Number: US-JNJFOC-20180922008

PATIENT
  Sex: Female
  Weight: 53.52 kg

DRUGS (2)
  1. WOMENS ROGAINE UNSCENTED [Suspect]
     Active Substance: MINOXIDIL
     Route: 061
  2. WOMENS ROGAINE UNSCENTED [Suspect]
     Active Substance: MINOXIDIL
     Indication: ALOPECIA
     Dosage: HALF CAPFUL IN THE CAP
     Route: 061
     Dates: end: 201805

REACTIONS (4)
  - Seborrhoea [Recovered/Resolved]
  - Product use in unapproved indication [Unknown]
  - Product storage error [Unknown]
  - Product formulation issue [Unknown]

NARRATIVE: CASE EVENT DATE: 2018
